FAERS Safety Report 25691556 (Version 1)
Quarter: 2025Q3

REPORT INFORMATION
  Report Type: Report from Study
  Country: CA (occurrence: CA)
  Receive Date: 20250818
  Receipt Date: 20250818
  Transmission Date: 20251020
  Serious: Yes (Hospitalization, Other)
  Sender: TEVA
  Company Number: CA-TEVA-VS-3364019

PATIENT
  Age: 52 Year
  Sex: Female

DRUGS (2)
  1. CETIRIZINE HYDROCHLORIDE [Suspect]
     Active Substance: CETIRIZINE HYDROCHLORIDE
     Indication: Product used for unknown indication
     Route: 065
  2. GUSELKUMAB [Suspect]
     Active Substance: GUSELKUMAB
     Indication: Psoriasis
     Route: 058

REACTIONS (6)
  - Influenza [Recovering/Resolving]
  - Arthralgia [Recovering/Resolving]
  - Thirst [Recovering/Resolving]
  - Anxiety [Recovering/Resolving]
  - Diplopia [Recovering/Resolving]
  - Blood pressure increased [Recovering/Resolving]
